FAERS Safety Report 11796943 (Version 2)
Quarter: 2015Q4

REPORT INFORMATION
  Report Type: Spontaneous
  Country: JP (occurrence: JP)
  Receive Date: 20151203
  Receipt Date: 20151229
  Transmission Date: 20160305
  Serious: Yes (Death, Other)
  Sender: FDA-Public Use
  Company Number: PHJP2015JP021405

PATIENT
  Age: 89 Year
  Sex: Male

DRUGS (1)
  1. VOTRIENT [Suspect]
     Active Substance: PAZOPANIB HYDROCHLORIDE
     Indication: METASTATIC RENAL CELL CARCINOMA
     Dosage: 400 MG, QD
     Route: 048
     Dates: start: 20140630, end: 20141222

REACTIONS (13)
  - Malignant neoplasm progression [Fatal]
  - Hypertension [Unknown]
  - Fatigue [Unknown]
  - Thyroid hormones increased [Unknown]
  - Blood bilirubin increased [Unknown]
  - Tinnitus [Unknown]
  - Dysphonia [Unknown]
  - Therapeutic response decreased [Unknown]
  - Proteinuria [Unknown]
  - Hypothyroidism [Recovered/Resolved]
  - Diarrhoea [Unknown]
  - Malignant pleural effusion [Unknown]
  - Platelet count decreased [Unknown]

NARRATIVE: CASE EVENT DATE: 20140825
